FAERS Safety Report 5909149-5 (Version None)
Quarter: 2008Q4

REPORT INFORMATION
  Report Type: 
  Country: None (occurrence: None)
  Receive Date: 20081006
  Receipt Date: 20080926
  Transmission Date: 20090506
  Serious: Yes (Other)
  Sender: FDA-Public Use
  Company Number: BE-PFIZER INC-2008082282

PATIENT
  Sex: Female

DRUGS (8)
  1. LYRICA [Suspect]
     Indication: DIABETIC NEUROPATHY
     Route: 048
     Dates: start: 20080904, end: 20080910
  2. LORMETAZEPAM [Concomitant]
     Route: 048
  3. ARICEPT [Concomitant]
     Route: 048
  4. ALDACTONE [Concomitant]
     Route: 048
  5. ALENDRONIC ACID [Concomitant]
     Route: 048
  6. OMEPRAZOLE [Concomitant]
     Route: 048
  7. AKTON [Concomitant]
     Route: 048
  8. BETASERC [Concomitant]
     Route: 048

REACTIONS (1)
  - HYPERGLYCAEMIA [None]
